FAERS Safety Report 6616766-6 (Version None)
Quarter: 2010Q1

REPORT INFORMATION
  Report Type: 
  Country: None (occurrence: None)
  Receive Date: 20100305
  Receipt Date: 20100224
  Transmission Date: 20100710
  Serious: Yes (Other)
  Sender: FDA-Public Use
  Company Number: US-PFIZER INC-2010025245

PATIENT
  Sex: Male
  Weight: 65.77 kg

DRUGS (2)
  1. CELEBREX [Suspect]
     Indication: EPICONDYLITIS
     Dosage: UNK
     Dates: start: 20100127, end: 20100202
  2. CORTISONE [Suspect]
     Indication: EPICONDYLITIS
     Dates: start: 20100101

REACTIONS (6)
  - DYSPNOEA [None]
  - ECZEMA [None]
  - ERYTHEMA MULTIFORME [None]
  - SPEECH DISORDER [None]
  - STEVENS-JOHNSON SYNDROME [None]
  - URTICARIA [None]
